FAERS Safety Report 6921665-6 (Version None)
Quarter: 2010Q3

REPORT INFORMATION
  Report Type: 
  Country: None (occurrence: None)
  Receive Date: 20100812
  Receipt Date: 20100803
  Transmission Date: 20110219
  Serious: Yes (Other)
  Sender: FDA-Public Use
  Company Number: US-PFIZER INC-2010098209

PATIENT
  Sex: Female
  Weight: 51.247 kg

DRUGS (3)
  1. LIPITOR [Suspect]
     Indication: HYPERLIPIDAEMIA
     Dosage: 10 MG, DAILY
     Route: 048
  2. BENICAR HCT [Concomitant]
     Indication: HYPERTENSION
     Dosage: UNK
  3. LEVOTHROID [Concomitant]
     Indication: HYPERTHYROIDISM
     Dosage: UNK

REACTIONS (7)
  - BLOOD CHOLESTEROL INCREASED [None]
  - BODY HEIGHT DECREASED [None]
  - LOW DENSITY LIPOPROTEIN ABNORMAL [None]
  - MUSCLE SPASMS [None]
  - PAIN IN EXTREMITY [None]
  - SLEEP DISORDER [None]
  - WEIGHT FLUCTUATION [None]
